FAERS Safety Report 5035424-5 (Version None)
Quarter: 2006Q2

REPORT INFORMATION
  Report Type: 
  Country: None (occurrence: None)
  Receive Date: 20060622
  Receipt Date: 20060608
  Transmission Date: 20061013
  Serious: Yes (Other)
  Sender: FDA-Public Use
  Company Number: 2006RR-02615

PATIENT
  Sex: Female

DRUGS (3)
  1. CYCLOPENTOLATE HYDROCHLORIDE [Suspect]
     Indication: ULCERATIVE KERATITIS
     Dosage: TOPICAL
     Route: 061
  2. LATANOPROST [Suspect]
     Indication: GLAUCOMA
  3. OFLOXACIN [Suspect]
     Indication: ULCERATIVE KERATITIS
     Dosage: TOPICAL
     Route: 061

REACTIONS (4)
  - CORNEAL DEPOSITS [None]
  - DRUG INTERACTION [None]
  - IMPAIRED HEALING [None]
  - PH BODY FLUID ABNORMAL [None]
